FAERS Safety Report 8874527 (Version 1)
Quarter: 2012Q4

REPORT INFORMATION
  Report Type: 
  Country: US (occurrence: US)
  Receive Date: 20121031
  Receipt Date: 20121031
  Transmission Date: 20130627
  Serious: No
  Sender: FDA-Public Use
  Company Number: US-BAYER-2012-111125

PATIENT
  Age: 22 Year
  Sex: Female

DRUGS (2)
  1. NATAZIA [Suspect]
     Indication: CONTRACEPTION
     Dosage: UNK
     Route: 048
     Dates: start: 201210
  2. NATAZIA [Suspect]
     Indication: MENORRHAGIA

REACTIONS (1)
  - Menorrhagia [Not Recovered/Not Resolved]
